FAERS Safety Report 4371383-6 (Version None)
Quarter: 2004Q2

REPORT INFORMATION
  Report Type: 
  Country: None (occurrence: None)
  Receive Date: 20040607
  Receipt Date: 20040517
  Transmission Date: 20050107
  Serious: Yes (Hospitalization)
  Sender: FDA-Public Use
  Company Number: PHBS2004FI06604

PATIENT
  Age: 80 Year
  Sex: Female

DRUGS (5)
  1. ZOMETA [Suspect]
     Indication: COMPRESSION FRACTURE
     Dosage: 4 MG
     Dates: start: 20040224
  2. LINATIL [Concomitant]
     Dosage: 15 MG/D
     Route: 048
  3. PRIMASPAN [Concomitant]
     Dosage: 100 MG/D
     Route: 048
  4. IMOVANE [Concomitant]
     Dosage: 3.75 MG/D
     Route: 048
  5. ACETAMINOPHEN [Concomitant]
     Dosage: 3 G/D
     Route: 048

REACTIONS (7)
  - CARPAL TUNNEL SYNDROME [None]
  - HYPOAESTHESIA [None]
  - MOBILITY DECREASED [None]
  - MUSCULAR WEAKNESS [None]
  - OEDEMA PERIPHERAL [None]
  - PAIN IN EXTREMITY [None]
  - VISUAL ACUITY REDUCED [None]
